FAERS Safety Report 5230232-4 (Version None)
Quarter: 2007Q1

REPORT INFORMATION
  Report Type: 
  Country: None (occurrence: None)
  Receive Date: 20070206
  Receipt Date: 20061011
  Transmission Date: 20070707
  Serious: No
  Sender: FDA-Public Use
  Company Number: US-GLAXOSMITHKLINE-A0623247A

PATIENT
  Age: 73 Year
  Sex: Female

DRUGS (3)
  1. PAXIL CR [Suspect]
     Dosage: 37.5MG THREE TIMES PER DAY
     Route: 048
  2. FOSAMAX [Concomitant]
  3. HORMONE REPLACEMENT THERAPY [Concomitant]

REACTIONS (5)
  - ASTHENIA [None]
  - CHILLS [None]
  - DIARRHOEA [None]
  - DIZZINESS [None]
  - PARAESTHESIA [None]
